FAERS Safety Report 10716682 (Version 3)
Quarter: 2015Q3

REPORT INFORMATION
  Report Type: Spontaneous
  Country: US (occurrence: US)
  Receive Date: 20150116
  Receipt Date: 20150921
  Transmission Date: 20151125
  Serious: Yes (Hospitalization)
  Sender: FDA-Public Use
  Company Number: US-BAYER-2015-006687

PATIENT
  Age: 32 Year
  Sex: Female
  Weight: 82 kg

DRUGS (5)
  1. MIRENA [Suspect]
     Active Substance: LEVONORGESTREL
     Indication: MENORRHAGIA
  2. MIRENA [Suspect]
     Active Substance: LEVONORGESTREL
     Indication: CONTRACEPTION
     Dosage: 20 MCG/24HR, CONT
     Route: 015
     Dates: start: 20120503, end: 20130107
  3. LOESTRIN FE 1/20 [Concomitant]
     Active Substance: ETHINYL ESTRADIOL\NORETHINDRONE ACETATE
  4. DIFLUCAN [Concomitant]
     Active Substance: FLUCONAZOLE
  5. FLAGYL [Concomitant]
     Active Substance: METRONIDAZOLE\METRONIDAZOLE HYDROCHLORIDE

REACTIONS (6)
  - Injury [Recovered/Resolved]
  - Embedded device [Recovered/Resolved]
  - Pain [Recovered/Resolved]
  - Pregnancy with contraceptive device [None]
  - Drug ineffective [None]
  - Device issue [Recovered/Resolved]

NARRATIVE: CASE EVENT DATE: 2012
